FAERS Safety Report 10747718 (Version 1)
Quarter: 2015Q1

REPORT INFORMATION
  Report Type: Spontaneous
  Country: US (occurrence: US)
  Receive Date: 20150129
  Receipt Date: 20150129
  Transmission Date: 20150721
  Serious: No
  Sender: FDA-Public Use
  Company Number: US-009507513-1501USA010790

PATIENT
  Age: 20 Year
  Sex: Female
  Weight: 72.56 kg

DRUGS (1)
  1. NEXPLANON [Suspect]
     Active Substance: ETONOGESTREL
     Indication: MENSTRUAL CYCLE MANAGEMENT
     Dosage: 1 IMPLANT/ 3 YEARS, LEFT ARM
     Route: 059
     Dates: start: 20120222

REACTIONS (10)
  - Acne [Unknown]
  - Weight increased [Unknown]
  - Migraine [Unknown]
  - Muscle spasms [Unknown]
  - Drug administration error [Unknown]
  - Amenorrhoea [Unknown]
  - Haemorrhage [Unknown]
  - Back pain [Unknown]
  - Headache [Unknown]
  - Nausea [Unknown]

NARRATIVE: CASE EVENT DATE: 20120222
